FAERS Safety Report 6126689-7 (Version None)
Quarter: 2009Q1

REPORT INFORMATION
  Report Type: 
  Country: None (occurrence: None)
  Receive Date: 20090320
  Receipt Date: 20090310
  Transmission Date: 20090719
  Serious: Yes (Other)
  Sender: FDA-Public Use
  Company Number: JP-PFIZER INC-2009176590

PATIENT

DRUGS (1)
  1. MYCOBUTIN [Suspect]
     Indication: MYCOBACTERIUM AVIUM COMPLEX INFECTION
     Dosage: 150 MG, 1X/DAY
     Route: 048
     Dates: start: 20090117, end: 20090214

REACTIONS (1)
  - LIVER DISORDER [None]
